FAERS Safety Report 8509943-0 (Version None)
Quarter: 2012Q3

REPORT INFORMATION
  Report Type: 
  Country: None (occurrence: None)
  Receive Date: 20120713
  Receipt Date: 20120704
  Transmission Date: 20120928
  Serious: Yes (Hospitalization)
  Sender: FDA-Public Use
  Company Number: JP-VERTEX PHARMACEUTICALS INC.-AE-2012-004899

PATIENT
  Age: 67 Year
  Sex: Male

DRUGS (9)
  1. PEG-INTRON [Concomitant]
     Route: 058
     Dates: start: 20120221, end: 20120321
  2. REBETOL [Concomitant]
     Indication: HEPATITIS C
     Route: 048
     Dates: start: 20120207, end: 20120328
  3. XYZAL [Concomitant]
     Route: 048
     Dates: end: 20120219
  4. TELAVIC (TELAPREVIR) [Suspect]
     Indication: HEPATITIS C
     Route: 048
     Dates: start: 20120207
  5. PEG-INTRON [Concomitant]
     Indication: HEPATITIS C
     Route: 058
     Dates: start: 20120207, end: 20120214
  6. TELAVIC (TELAPREVIR) [Suspect]
     Route: 048
     Dates: start: 20120320
  7. LENDORMIN [Concomitant]
     Indication: INSOMNIA
     Route: 048
  8. EBASTINE [Concomitant]
     Route: 048
     Dates: start: 20120220, end: 20120328
  9. TELAVIC (TELAPREVIR) [Suspect]
     Route: 048
     Dates: start: 20120321, end: 20120328

REACTIONS (1)
  - DRUG ERUPTION [None]
